FAERS Safety Report 4925319-7 (Version None)
Quarter: 2006Q1

REPORT INFORMATION
  Report Type: 
  Country: None (occurrence: None)
  Receive Date: 20060224
  Receipt Date: 20060224
  Transmission Date: 20060701
  Serious: No
  Sender: FDA-Public Use
  Company Number: None

PATIENT
  Sex: Female

DRUGS (1)
  1. METOPROLOL 25 MG MYLAN [Suspect]
     Indication: HYPERTENSION
     Dosage: 25 MG BID PO
     Route: 048
     Dates: start: 20060103, end: 20060223

REACTIONS (4)
  - ABNORMAL DREAMS [None]
  - FEAR [None]
  - HALLUCINATION [None]
  - NIGHTMARE [None]
